FAERS Safety Report 7014550 (Version 2)
Quarter: 2014Q3

REPORT INFORMATION
  Report Type: Spontaneous
  Country: US (occurrence: None)
  Receive Date: 20090527
  Receipt Date: 20140926
  Transmission Date: 20150326
  Serious: Yes (Hospitalization, Other)
  Sender: FDA-Public Use
  Company Number: 2009S1004178

PATIENT
  Age: 57 Year
  Sex: Female

DRUGS (9)
  1. LYRICA ( PREGABALIN) [Concomitant]
  2. NASONEX ( MOMETASONE FUROATE) [Concomitant]
  3. LISINOPRIL ( LISINOPRIL) [Concomitant]
  4. SEROQUEL ( QUETIAPINE FUMARATE) [Concomitant]
  5. CLONAZEPAM ( CLONAZEPAM) [Concomitant]
  6. PREVACID ( LANSOPRAZOLE) [Concomitant]
  7. TRILEPTAL ( OXCARBAZEPINE) [Concomitant]
  8. PHOSPHO-SODA [Suspect]
     Active Substance: SODIUM PHOSPHATE, DIBASIC\SODIUM PHOSPHATE, MONOBASIC
     Indication: COLONOSCOPY
     Dosage: 2 IN 1 DAYS, ORAL
     Route: 048
     Dates: start: 20080131, end: 20080131
  9. LUNESTA ( ESZOPICLONE) [Concomitant]

REACTIONS (16)
  - Acute phosphate nephropathy [None]
  - Hypotension [None]
  - Nephrogenic anaemia [None]
  - Abdominal distension [None]
  - Hypertension [None]
  - Urinary tract infection [None]
  - Fatigue [None]
  - Hypoaesthesia [None]
  - Nephrocalcinosis [None]
  - Dyspnoea exertional [None]
  - Constipation [None]
  - Renal failure [None]
  - Pain in extremity [None]
  - Renal failure chronic [None]
  - Sinus congestion [None]
  - Renal failure acute [None]

NARRATIVE: CASE EVENT DATE: 200802
